FAERS Safety Report 6060753-6 (Version None)
Quarter: 2009Q1

REPORT INFORMATION
  Report Type: 
  Country: None (occurrence: None)
  Receive Date: 20090129
  Receipt Date: 20090129
  Transmission Date: 20090719
  Serious: Yes (Other)
  Sender: FDA-Public Use
  Company Number: None

PATIENT
  Sex: Female

DRUGS (1)
  1. SERTRALINE [Suspect]
     Indication: DEPRESSION
     Dosage: 200MG/DAY PO
     Route: 048
     Dates: start: 20000101

REACTIONS (6)
  - FEAR [None]
  - MOVEMENT DISORDER [None]
  - OBSESSIVE-COMPULSIVE DISORDER [None]
  - SELF-INJURIOUS IDEATION [None]
  - THERAPEUTIC RESPONSE UNEXPECTED WITH DRUG SUBSTITUTION [None]
  - THINKING ABNORMAL [None]
